FAERS Safety Report 17858974 (Version 1)
Quarter: 2020Q2

REPORT INFORMATION
  Report Type: Spontaneous
  Country: US (occurrence: US)
  Receive Date: 20200603
  Receipt Date: 20200603
  Transmission Date: 20200714
  Serious: Yes (Other)
  Sender: FDA-Public Use
  Company Number: None

PATIENT
  Age: 62 Year
  Sex: Female
  Weight: 54.7 kg

DRUGS (7)
  1. NOREPINEPHRINE. [Concomitant]
     Active Substance: NOREPINEPHRINE
     Dates: start: 20200522, end: 20200529
  2. FENTANYL. [Concomitant]
     Active Substance: FENTANYL
     Dates: start: 20200522, end: 20200529
  3. AMIODARONE [Concomitant]
     Active Substance: AMIODARONE
     Dates: start: 20200523, end: 20200525
  4. REMDESIVIR. [Suspect]
     Active Substance: REMDESIVIR
     Route: 041
     Dates: start: 20200523, end: 20200527
  5. METHYLPREDNISOLONE. [Concomitant]
     Active Substance: METHYLPREDNISOLONE
     Dates: start: 20200523, end: 20200603
  6. ZOSYN [Concomitant]
     Active Substance: PIPERACILLIN SODIUM\TAZOBACTAM SODIUM
     Dates: start: 20200523
  7. PROPOFOL. [Concomitant]
     Active Substance: PROPOFOL
     Dates: start: 20200522, end: 20200528

REACTIONS (1)
  - Liver function test increased [None]

NARRATIVE: CASE EVENT DATE: 20200527
